FAERS Safety Report 5671677-8 (Version None)
Quarter: 2008Q2

REPORT INFORMATION
  Report Type: 
  Country: None (occurrence: None)
  Receive Date: 20080229
  Receipt Date: 20071109
  Transmission Date: 20081010
  Serious: No
  Sender: FDA-Public Use
  Company Number: PHEH2007US14702

PATIENT

DRUGS (1)
  1. EXJADE [Suspect]
     Indication: IRON OVERLOAD
     Dosage: QD, ORAL
     Route: 048
     Dates: start: 20071103, end: 20071109

REACTIONS (1)
  - FAECES DISCOLOURED [None]
